FAERS Safety Report 8884947 (Version 1)
Quarter: 2012Q4

REPORT INFORMATION
  Report Type: 
  Country: US (occurrence: US)
  Receive Date: 20121102
  Receipt Date: 20121102
  Transmission Date: 20130627
  Serious: No
  Sender: FDA-Public Use
  Company Number: US-BAYER-2012-112863

PATIENT
  Age: 22 Year
  Sex: Female

DRUGS (3)
  1. MIRENA [Suspect]
     Indication: CONTRACEPTION
     Dosage: 20 mcg/24hr, CONT
     Route: 015
     Dates: start: 201203, end: 20121023
  2. CREAMS [Concomitant]
     Indication: ACNE
     Dosage: UNK
  3. ADVIL [Concomitant]
     Indication: CRAMP IN LOWER ABDOMEN
     Dosage: UNK

REACTIONS (5)
  - Acne [Not Recovered/Not Resolved]
  - Pruritus [Not Recovered/Not Resolved]
  - Mood swings [None]
  - Emotional disorder [None]
  - Dysmenorrhoea [None]
